FAERS Safety Report 20777587 (Version 1)
Quarter: 2022Q2

REPORT INFORMATION
  Report Type: Spontaneous
  Country: US (occurrence: None)
  Receive Date: 20220502
  Receipt Date: 20220502
  Transmission Date: 20220721
  Serious: Yes (Other)
  Sender: FDA-Public Use
  Company Number: None

PATIENT
  Age: 62 Year
  Sex: Female
  Weight: 83.7 kg

DRUGS (4)
  1. PAXLOVID [Suspect]
     Active Substance: NIRMATRELVIR\RITONAVIR
     Indication: COVID-19
     Dosage: OTHER QUANTITY : 3 TABLET(S);?FREQUENCY : TWICE A DAY;?
     Route: 048
     Dates: start: 20220419, end: 20220424
  2. SERTRALINE [Concomitant]
     Active Substance: SERTRALINE HYDROCHLORIDE
  3. VITAMIN D [Concomitant]
     Active Substance: VITAMIN D NOS
  4. CLARITIN [Concomitant]
     Active Substance: LORATADINE

REACTIONS (10)
  - Upper-airway cough syndrome [None]
  - Headache [None]
  - Cough [None]
  - Pain [None]
  - Nasal congestion [None]
  - Pyrexia [None]
  - Fatigue [None]
  - Nausea [None]
  - Sneezing [None]
  - COVID-19 [None]

NARRATIVE: CASE EVENT DATE: 20220502
